FAERS Safety Report 9664026 (Version 1)
Quarter: 2013Q4

REPORT INFORMATION
  Report Type: Spontaneous
  Country: US (occurrence: US)
  Receive Date: 20131101
  Receipt Date: 20131101
  Transmission Date: 20140711
  Serious: Yes (Other)
  Sender: FDA-Public Use
  Company Number: US-PFIZER INC-2013309348

PATIENT
  Age: 45 Year
  Sex: Male
  Weight: 74.83 kg

DRUGS (6)
  1. SULFASALAZINE [Suspect]
     Indication: RHEUMATOID ARTHRITIS
     Dosage: 1000 MG (2 TABLETS OF 500 MG AT A TIME), 2X/DAY
     Route: 048
     Dates: start: 201301, end: 201306
  2. SULFASALAZINE [Suspect]
     Dosage: 1000 MG (2 TABLETS OF 500 MG AT A TIME), 2X/DAY
     Route: 048
     Dates: start: 201309, end: 20131028
  3. LIOTHYRONINE [Concomitant]
     Dosage: UNK
  4. LISINOPRIL [Concomitant]
     Dosage: UNK
  5. FOLIC ACID [Concomitant]
     Dosage: UNK
  6. METHOTREXATE [Concomitant]
     Dosage: UNK, WEEKLY

REACTIONS (1)
  - Coeliac disease [Not Recovered/Not Resolved]
